FAERS Safety Report 19646281 (Version 1)
Quarter: 2021Q3

REPORT INFORMATION
  Report Type: Report from Study
  Country: None (occurrence: US)
  Receive Date: 20210802
  Receipt Date: 20210802
  Transmission Date: 20211014
  Serious: Yes (Hospitalization, Other)
  Sender: FDA-Public Use
  Company Number: US-ABBVIE-21K-163-3968881-00

PATIENT
  Age: 60 Year
  Sex: Female
  Weight: 73.55 kg

DRUGS (6)
  1. COVID?19 VACCINE [Concomitant]
     Indication: PRODUCT USED FOR UNKNOWN INDICATION
     Route: 030
     Dates: start: 20210416, end: 20210416
  2. METHOTREXATE. [Concomitant]
     Active Substance: METHOTREXATE
     Indication: PSORIATIC ARTHROPATHY
  3. HUMIRA [Suspect]
     Active Substance: ADALIMUMAB
     Indication: PSORIATIC ARTHROPATHY
     Dosage: CITRATE FREE
     Route: 058
     Dates: start: 2020, end: 20210504
  4. TYLENOL [Concomitant]
     Active Substance: ACETAMINOPHEN
     Indication: PAIN
  5. COVID?19 VACCINE [Concomitant]
     Route: 030
     Dates: start: 20210514, end: 20210514
  6. METHOTREXATE. [Concomitant]
     Active Substance: METHOTREXATE
     Indication: FIBROMYALGIA

REACTIONS (6)
  - Synovial fluid analysis abnormal [Not Recovered/Not Resolved]
  - Arthritis infective [Recovering/Resolving]
  - Feeling hot [Recovering/Resolving]
  - Gait disturbance [Recovered/Resolved]
  - Post procedural complication [Unknown]
  - Osteoarthritis [Recovering/Resolving]

NARRATIVE: CASE EVENT DATE: 2020
